FAERS Safety Report 10032317 (Version 2)
Quarter: 2014Q2

REPORT INFORMATION
  Report Type: Spontaneous
  Country: US (occurrence: US)
  Receive Date: 20140324
  Receipt Date: 20140506
  Transmission Date: 20141212
  Serious: Yes (Death, Hospitalization, Other)
  Sender: FDA-Public Use
  Company Number: US-PFIZER INC-2014080155

PATIENT
  Age: 76 Year
  Sex: Female

DRUGS (4)
  1. REVATIO [Suspect]
     Indication: PULMONARY ARTERIAL HYPERTENSION
     Dosage: 20 MG, 3X/DAY
     Dates: start: 20090317
  2. REVATIO [Suspect]
     Dosage: 40 MG, 3X/DAY
     Route: 048
  3. LETAIRIS [Concomitant]
     Dosage: UNK
  4. TYROSINE [Concomitant]
     Dosage: UNK

REACTIONS (5)
  - Pulmonary hypertension [Fatal]
  - Atrial fibrillation [Unknown]
  - Hypoxia [Unknown]
  - Hypotension [Unknown]
  - Cardiac failure [Unknown]
